FAERS Safety Report 9657885 (Version 1)
Quarter: 2013Q4

REPORT INFORMATION
  Report Type: Spontaneous
  Country: IT (occurrence: None)
  Receive Date: 20131029
  Receipt Date: 20131029
  Transmission Date: 20140711
  Serious: Yes (Other)
  Sender: FDA-Public Use
  Company Number: B0936317A

PATIENT
  Age: 22 Year
  Sex: Female

DRUGS (2)
  1. RANITIDINE HYDROCHLORIDE [Suspect]
     Indication: ASTHMA
     Dosage: 100 MG / SINGLE DOSE / UNKNOWN?
  2. HYDROCORTISONE [Suspect]
     Indication: ASTHMA
     Dosage: 300 MG / SINGLE DOSE / INTRAVENOUS?

REACTIONS (6)
  - Anaphylactic reaction [None]
  - Fatigue [None]
  - Dysphonia [None]
  - Urticaria [None]
  - Hypotension [None]
  - Infusion related reaction [None]
